FAERS Safety Report 24364043 (Version 2)
Quarter: 2025Q1

REPORT INFORMATION
  Report Type: Spontaneous
  Country: US (occurrence: US)
  Receive Date: 20240925
  Receipt Date: 20250106
  Transmission Date: 20250409
  Serious: Yes (Other)
  Sender: PFIZER
  Company Number: US-PFIZER INC-PV202400122473

PATIENT
  Age: 73 Year

DRUGS (1)
  1. PAXLOVID [Suspect]
     Active Substance: NIRMATRELVIR\RITONAVIR
     Indication: COVID-19 treatment

REACTIONS (5)
  - Pneumonia [Unknown]
  - Mental impairment [Unknown]
  - Illness [Unknown]
  - Speech disorder [Unknown]
  - Therapeutic product effect incomplete [Unknown]
